FAERS Safety Report 8474576 (Version 8)
Quarter: 2012Q4

REPORT INFORMATION
  Report Type: Report from Study
  Country: US (occurrence: US)
  Receive Date: 20120323
  Receipt Date: 20121221
  Transmission Date: 20130627
  Serious: Yes (Life-Threatening, Hospitalization, Disabling, Other)
  Sender: FDA-Public Use
  Company Number: US-ABBOTT-12P-163-0899965-00

PATIENT
  Age: 57 Year
  Sex: Female
  Weight: 74.8 kg

DRUGS (4)
  1. RITONAVIR SOFT GELATIN CAPSULES [Suspect]
     Indication: HIV INFECTION
     Route: 048
     Dates: start: 20100420, end: 20120121
  2. ATAZANAVIR SULFATE [Concomitant]
     Indication: HIV INFECTION
     Route: 048
     Dates: start: 20100410, end: 20120121
  3. EPZICOM [Concomitant]
     Indication: HIV INFECTION
  4. TENOFOVIR DF+EMTRICITABINE(TENOFOVIR DISOPROXIL FUMARATE+EMTRICITABINE [Concomitant]
     Indication: HIV INFECTION
     Route: 048
     Dates: start: 20100410

REACTIONS (3)
  - Bacteraemia [Unknown]
  - Chronic obstructive pulmonary disease [Recovered/Resolved]
  - Urosepsis [Unknown]
